FAERS Safety Report 7617505-2 (Version None)
Quarter: 2011Q3

REPORT INFORMATION
  Report Type: 
  Country: None (occurrence: None)
  Receive Date: 20110718
  Receipt Date: 20110705
  Transmission Date: 20111222
  Serious: Yes (Hospitalization)
  Sender: FDA-Public Use
  Company Number: JP-ELI_LILLY_AND_COMPANY-JP201107002133

PATIENT

DRUGS (1)
  1. ZYPREXA [Suspect]
     Indication: ANXIETY
     Dosage: UNK, PRN
     Route: 048

REACTIONS (2)
  - OFF LABEL USE [None]
  - SURGERY [None]
